FAERS Safety Report 14275473 (Version 2)
Quarter: 2018Q1

REPORT INFORMATION
  Report Type: Spontaneous
  Country: FR (occurrence: FR)
  Receive Date: 20171212
  Receipt Date: 20180104
  Transmission Date: 20180508
  Serious: Yes (Disabling, Other)
  Sender: FDA-Public Use
  Company Number: FR-TEVA-2017-FR-833479

PATIENT
  Age: 44 Year
  Sex: Male

DRUGS (17)
  1. VINCRISTINE [Suspect]
     Active Substance: VINCRISTINE
     Indication: PERIPHERAL T-CELL LYMPHOMA UNSPECIFIED STAGE IV
     Route: 065
  2. BRENTUXIMAB VEDOTIN [Suspect]
     Active Substance: BRENTUXIMAB VEDOTIN
     Indication: T-CELL LYMPHOMA STAGE IV
     Dosage: 2 WEEKS AFTER THE 2 ND CYCLE
     Route: 065
  3. PREDNISONE. [Suspect]
     Active Substance: PREDNISONE
     Route: 065
  4. ETOPOSIDE. [Suspect]
     Active Substance: ETOPOSIDE
     Route: 065
  5. DEXAMETHASONE. [Suspect]
     Active Substance: DEXAMETHASONE
     Indication: PERIPHERAL T-CELL LYMPHOMA UNSPECIFIED STAGE IV
     Route: 065
  6. VALGANCICLOVIR HYDROCHLORIDE. [Suspect]
     Active Substance: VALGANCICLOVIR HYDROCHLORIDE
     Indication: ANTIVIRAL TREATMENT
     Route: 065
  7. VALGANCICLOVIR HYDROCHLORIDE. [Suspect]
     Active Substance: VALGANCICLOVIR HYDROCHLORIDE
     Route: 065
  8. CYCLOPHOSPHAMIDE. [Suspect]
     Active Substance: CYCLOPHOSPHAMIDE
     Indication: T-CELL LYMPHOMA STAGE IV
     Route: 065
  9. CYCLOPHOSPHAMIDE. [Suspect]
     Active Substance: CYCLOPHOSPHAMIDE
     Route: 065
  10. PREDNISONE. [Suspect]
     Active Substance: PREDNISONE
     Indication: T-CELL LYMPHOMA STAGE IV
     Route: 065
  11. BRENTUXIMAB VEDOTIN [Suspect]
     Active Substance: BRENTUXIMAB VEDOTIN
     Dosage: 2 WEEKS AFTER THE 2 ND CYCLE
     Route: 065
  12. ADRIAMYCIN [Suspect]
     Active Substance: DOXORUBICIN HYDROCHLORIDE
     Indication: PERIPHERAL T-CELL LYMPHOMA UNSPECIFIED STAGE IV
     Route: 065
  13. CARBOPLATIN. [Suspect]
     Active Substance: CARBOPLATIN
     Indication: PERIPHERAL T-CELL LYMPHOMA UNSPECIFIED STAGE IV
     Route: 065
  14. CYTARABINE. [Suspect]
     Active Substance: CYTARABINE
     Indication: T-CELL LYMPHOMA STAGE IV
     Route: 065
  15. ETOPOSIDE. [Suspect]
     Active Substance: ETOPOSIDE
     Indication: PERIPHERAL T-CELL LYMPHOMA UNSPECIFIED STAGE IV
     Route: 065
  16. BENDAMUSTINE HYDROCHLORIDE. [Suspect]
     Active Substance: BENDAMUSTINE HYDROCHLORIDE
     Indication: T-CELL LYMPHOMA STAGE IV
     Route: 042
  17. VALGANCICLOVIR HYDROCHLORIDE. [Suspect]
     Active Substance: VALGANCICLOVIR HYDROCHLORIDE
     Route: 048

REACTIONS (11)
  - Hepatitis viral [Unknown]
  - Septic shock [Unknown]
  - Alanine aminotransferase increased [Unknown]
  - Pneumonia [Unknown]
  - Cytomegalovirus infection [Unknown]
  - Gamma-glutamyltransferase increased [Unknown]
  - Cytomegalovirus chorioretinitis [Not Recovered/Not Resolved]
  - Cytomegalovirus infection [Recovering/Resolving]
  - Dyspnoea [Unknown]
  - Blindness [Not Recovered/Not Resolved]
  - Pyrexia [Unknown]
